FAERS Safety Report 20953336 (Version 1)
Quarter: 2022Q2

REPORT INFORMATION
  Report Type: Spontaneous
  Country: US (occurrence: US)
  Receive Date: 20220613
  Receipt Date: 20220613
  Transmission Date: 20220720
  Serious: No
  Sender: FDA-Public Use
  Company Number: US-NOVARTISTESTPH-NVSC2022US134868

PATIENT
  Age: 71 Year
  Sex: Female
  Weight: 64 kg

DRUGS (4)
  1. VALSARTAN [Suspect]
     Active Substance: VALSARTAN
     Indication: Hypertension
     Dosage: 160 MG, QD IN THE EVENING
     Route: 065
     Dates: start: 202204
  2. VALSARTAN [Suspect]
     Active Substance: VALSARTAN
     Dosage: 320 MG
     Route: 065
  3. CALCIUM [Concomitant]
     Active Substance: CALCIUM
     Indication: Product used for unknown indication
     Dosage: UNK
     Route: 065
  4. VITAMIN D [Concomitant]
     Active Substance: VITAMIN D NOS
     Indication: Product used for unknown indication
     Dosage: UNK
     Route: 065

REACTIONS (14)
  - Presyncope [Recovered/Resolved]
  - Disorientation [Recovering/Resolving]
  - Balance disorder [Recovering/Resolving]
  - Sensory disturbance [Recovered/Resolved]
  - Gait disturbance [Recovering/Resolving]
  - Blood pressure fluctuation [Recovering/Resolving]
  - Confusional state [Recovering/Resolving]
  - Photophobia [Recovering/Resolving]
  - Malaise [Recovering/Resolving]
  - Palpitations [Recovered/Resolved]
  - Vertigo [Recovering/Resolving]
  - Headache [Recovering/Resolving]
  - Nausea [Recovering/Resolving]
  - Dizziness [Recovering/Resolving]

NARRATIVE: CASE EVENT DATE: 20220422
